FAERS Safety Report 9995541 (Version 2)
Quarter: 2014Q1

REPORT INFORMATION
  Report Type: Spontaneous
  Country: TR (occurrence: TR)
  Receive Date: 20140311
  Receipt Date: 20140311
  Transmission Date: 20141002
  Serious: Yes (Other)
  Sender: FDA-Public Use
  Company Number: TR-AMGEN-TURSP2014004297

PATIENT
  Age: 24 Year
  Sex: Female
  Weight: 80 kg

DRUGS (4)
  1. ENBREL [Suspect]
     Indication: ANKYLOSING SPONDYLITIS
     Dosage: 50 MG, WEEKLY
     Route: 058
     Dates: start: 20120927
  2. ENDOL                              /00003801/ [Concomitant]
     Dosage: UNK UNK, AS NECESSARY
  3. COLCHICUM-DISPERT [Concomitant]
     Dosage: UNK, 3X/DAY
  4. GLIFOR [Concomitant]
     Dosage: 1000 MG, 2X/DAY

REACTIONS (8)
  - Familial mediterranean fever [Not Recovered/Not Resolved]
  - Arthralgia [Recovered/Resolved]
  - Back pain [Recovered/Resolved]
  - Influenza [Recovered/Resolved]
  - Product quality issue [Not Recovered/Not Resolved]
  - Memory impairment [Recovered/Resolved]
  - Injection site erythema [Not Recovered/Not Resolved]
  - Injection site pruritus [Not Recovered/Not Resolved]
